FAERS Safety Report 21400148 (Version 1)
Quarter: 2022Q4

REPORT INFORMATION
  Report Type: Spontaneous
  Country: US (occurrence: US)
  Receive Date: 20221002
  Receipt Date: 20221002
  Transmission Date: 20230113
  Serious: No
  Sender: FDA-Public Use
  Company Number: US-SANOFI-01298232

PATIENT
  Age: 71 Year
  Sex: Female

DRUGS (1)
  1. MULTAQ [Suspect]
     Active Substance: DRONEDARONE
     Indication: Extrasystoles
     Dosage: 400 MG, Q12H

REACTIONS (2)
  - Alopecia [Unknown]
  - Heart rate increased [Unknown]
